FAERS Safety Report 5496245-2 (Version None)
Quarter: 2007Q4

REPORT INFORMATION
  Report Type: 
  Country: None (occurrence: None)
  Receive Date: 20071025
  Receipt Date: 20070316
  Transmission Date: 20080405
  Serious: No
  Sender: FDA-Public Use
  Company Number: A0643545A

PATIENT
  Age: 84 Year
  Sex: Male

DRUGS (22)
  1. ADVAIR DISKUS 100/50 [Suspect]
     Indication: DRUG USE FOR UNKNOWN INDICATION
     Dosage: 1PUFF TWICE PER DAY
     Route: 055
     Dates: start: 20050901
  2. FOSAMAX [Suspect]
     Indication: DRUG USE FOR UNKNOWN INDICATION
     Route: 065
     Dates: start: 20070101
  3. DIGITEK [Concomitant]
  4. LISINOPRIL [Concomitant]
  5. FUROSEMIDE [Concomitant]
  6. NIFEDIPINE [Concomitant]
  7. COREG [Concomitant]
  8. CALAN [Concomitant]
  9. UNKNOWN MEDICATION [Concomitant]
  10. GLIPIZIDE [Concomitant]
  11. LOVASTATIN [Concomitant]
  12. WARFARIN SODIUM [Concomitant]
  13. LAXATIVE [Concomitant]
  14. PACERONE [Concomitant]
  15. ADVAIR DISKUS 100/50 [Concomitant]
  16. GAVISCON [Concomitant]
  17. TYLENOL (CAPLET) [Concomitant]
  18. LUTEIN [Concomitant]
  19. CENTRUM SILVER [Concomitant]
  20. ASPIRIN [Concomitant]
  21. DOXYCYCLINE [Concomitant]
  22. OMEGA 3 [Concomitant]

REACTIONS (1)
  - COUGH [None]
